FAERS Safety Report 5050833-6 (Version None)
Quarter: 2006Q3

REPORT INFORMATION
  Report Type: 
  Country: None (occurrence: None)
  Receive Date: 20060710
  Receipt Date: 20060627
  Transmission Date: 20061208
  Serious: Yes (Life-Threatening, Hospitalization)
  Sender: FDA-Public Use
  Company Number: 2006081314

PATIENT
  Age: 52 Year
  Sex: Male
  Weight: 70 kg

DRUGS (1)
  1. SUTENT [Suspect]
     Indication: RENAL CELL CARCINOMA STAGE UNSPECIFIED
     Dosage: 37.5 MG, INTERVAL: EVERY DAY, ORAL
     Route: 048
     Dates: start: 20060614

REACTIONS (5)
  - ABDOMINAL PAIN [None]
  - ANAEMIA [None]
  - ANAL HAEMORRHAGE [None]
  - FATIGUE [None]
  - RENAL FAILURE [None]
